FAERS Safety Report 4529422-5 (Version None)
Quarter: 2004Q4

REPORT INFORMATION
  Report Type: 
  Country: None (occurrence: None)
  Receive Date: 20041216
  Receipt Date: 20041201
  Transmission Date: 20050328
  Serious: Yes (Death, Hospitalization, Other)
  Sender: FDA-Public Use
  Company Number: PHEH2004US12910

PATIENT
  Age: 76 Year
  Sex: Female

DRUGS (20)
  1. ZELNORM [Suspect]
     Indication: IRRITABLE BOWEL SYNDROME
     Dosage: 6 MG, BID
     Route: 048
     Dates: start: 20040701
  2. STEROIDS NOS [Suspect]
  3. ATROVENT [Concomitant]
     Dosage: 2 PUFFS/ Q4H
  4. FUROSEMIDE [Concomitant]
     Dosage: 40 MG, QD
  5. QUININE [Concomitant]
     Dosage: 260 MG, PRN
  6. K-DUR [Concomitant]
     Dosage: 20 MEQ, QD
  7. SINGULAIR [Concomitant]
     Dosage: 10 MG, UNK
  8. SEREVENT [Concomitant]
     Dosage: 1 PUFF BID
  9. XANAX [Concomitant]
     Dosage: 0.25 MG, PRN
  10. FLOVENT [Concomitant]
     Dosage: 220 MCG/BID
  11. XOPENEX [Concomitant]
     Dosage: 1.25 MG, Q6H
  12. PREDNISONE [Concomitant]
     Dosage: 40 MG, UNK
  13. ALDACTONE [Concomitant]
     Dosage: 25 MG, QD
  14. NEURONTIN [Concomitant]
     Dosage: 300 MG, BID
  15. ROBAXIN [Concomitant]
     Dosage: 500MG Q6H PRN
  16. CELEBREX [Concomitant]
     Dosage: 200 MG, QD
  17. PULMICORT [Concomitant]
  18. PREVACID [Concomitant]
  19. LASIX [Concomitant]
  20. BACTRIM [Suspect]

REACTIONS (22)
  - ABDOMINAL PAIN LOWER [None]
  - ABSCESS [None]
  - BLOOD PRESSURE DECREASED [None]
  - BREATH SOUNDS DECREASED [None]
  - CHEST X-RAY ABNORMAL [None]
  - CHRONIC OBSTRUCTIVE AIRWAYS DISEASE EXACERBATED [None]
  - DEATH [None]
  - ECCHYMOSIS [None]
  - HEART RATE INCREASED [None]
  - HYPERPLASIA [None]
  - INTESTINAL PERFORATION [None]
  - LUNG INFILTRATION [None]
  - NODULE [None]
  - OEDEMA PERIPHERAL [None]
  - OXYGEN SATURATION DECREASED [None]
  - PSEUDOMONAS INFECTION [None]
  - RESPIRATORY TRACT INFECTION [None]
  - RHONCHI [None]
  - SPUTUM CULTURE POSITIVE [None]
  - STAPHYLOCOCCAL INFECTION [None]
  - SURGERY [None]
  - WHEEZING [None]
